FAERS Safety Report 21309093 (Version 3)
Quarter: 2022Q3

REPORT INFORMATION
  Report Type: Spontaneous
  Country: US (occurrence: US)
  Receive Date: 20220908
  Receipt Date: 20220928
  Transmission Date: 20221027
  Serious: No
  Sender: FDA-Public Use
  Company Number: US-GILEAD-2022-0596746

PATIENT
  Age: 63 Year
  Sex: Male

DRUGS (4)
  1. EPCLUSA [Suspect]
     Active Substance: SOFOSBUVIR\VELPATASVIR
     Indication: Chronic hepatitis C
     Dosage: 1 DOSAGE FORM, QD
     Route: 048
     Dates: start: 20220905
  2. METHOCARBAMOL [Concomitant]
     Active Substance: METHOCARBAMOL
  3. BACTRIM DS [Concomitant]
     Active Substance: SULFAMETHOXAZOLE\TRIMETHOPRIM
  4. CYCLOBENZAPRINE HYDROCHLORIDE [Concomitant]
     Active Substance: CYCLOBENZAPRINE HYDROCHLORIDE

REACTIONS (8)
  - Feeling jittery [Unknown]
  - Insomnia [Unknown]
  - Weight increased [Unknown]
  - Musculoskeletal pain [Unknown]
  - Tremor [Unknown]
  - Flatulence [Recovered/Resolved]
  - Euphoric mood [Unknown]
  - Energy increased [Unknown]

NARRATIVE: CASE EVENT DATE: 20220905
